FAERS Safety Report 17658387 (Version 1)
Quarter: 2020Q2

REPORT INFORMATION
  Report Type: Report from Study
  Country: None (occurrence: IT)
  Receive Date: 20200412
  Receipt Date: 20200412
  Transmission Date: 20200713
  Serious: Yes (Death)
  Sender: FDA-Public Use
  Company Number: IT-ABBVIE-20K-083-3360200-00

PATIENT
  Age: 81 Year
  Sex: Female

DRUGS (1)
  1. DUODOPA [Suspect]
     Active Substance: CARBIDOPA\LEVODOPA
     Indication: PARKINSON^S DISEASE
     Dosage: MD: 9+3 CR: 3,8 (12H) ED: 2,7
     Route: 050
     Dates: start: 20151001, end: 20200330

REACTIONS (2)
  - Respiratory failure [Fatal]
  - Coronavirus infection [Fatal]

NARRATIVE: CASE EVENT DATE: 2020
